FAERS Safety Report 14699183 (Version 3)
Quarter: 2019Q2

REPORT INFORMATION
  Report Type: Spontaneous
  Country: US (occurrence: US)
  Receive Date: 20180330
  Receipt Date: 20190404
  Transmission Date: 20190711
  Serious: Yes (Other)
  Sender: FDA-Public Use
  Company Number: US-ASTRAZENECA-2018SE39103

PATIENT
  Sex: Male

DRUGS (37)
  1. DEXILANT [Suspect]
     Active Substance: DEXLANSOPRAZOLE
     Indication: GASTROINTESTINAL DISORDER
     Route: 065
     Dates: start: 201106, end: 201406
  2. PREVACID 24 HR [Suspect]
     Active Substance: LANSOPRAZOLE
     Indication: GASTROINTESTINAL DISORDER
     Route: 065
     Dates: start: 201106, end: 201406
  3. PROTONIX [Suspect]
     Active Substance: PANTOPRAZOLE SODIUM
     Indication: GASTROINTESTINAL DISORDER
     Route: 065
     Dates: start: 201106, end: 201406
  4. HYDROCODONE/ACETAMINOPHEN [Concomitant]
     Active Substance: ACETAMINOPHEN\HYDROCODONE
  5. CLOPIDOGREL [Concomitant]
     Active Substance: CLOPIDOGREL BISULFATE
  6. DIAZEPAM. [Concomitant]
     Active Substance: DIAZEPAM
  7. RANITIDINE. [Concomitant]
     Active Substance: RANITIDINE
  8. METFORMIN [Concomitant]
     Active Substance: METFORMIN HYDROCHLORIDE
  9. METOPROLOL TARTRATE. [Concomitant]
     Active Substance: METOPROLOL TARTRATE
  10. CLOPIDOGREL [Concomitant]
     Active Substance: CLOPIDOGREL BISULFATE
  11. AMLODIPINE [Concomitant]
     Active Substance: AMLODIPINE BESYLATE
  12. NIFEDICAL XL [Concomitant]
     Active Substance: NIFEDIPINE
  13. NEXIUM [Suspect]
     Active Substance: ESOMEPRAZOLE MAGNESIUM
     Indication: GASTROINTESTINAL DISORDER
     Route: 048
     Dates: start: 20100106, end: 20100106
  14. PRILOSEC [Suspect]
     Active Substance: OMEPRAZOLE MAGNESIUM
     Indication: GASTROINTESTINAL DISORDER
     Route: 048
  15. IBUPROFEN. [Concomitant]
     Active Substance: IBUPROFEN
  16. ATENOLOL. [Concomitant]
     Active Substance: ATENOLOL
  17. FUROSEMIDE. [Concomitant]
     Active Substance: FUROSEMIDE
  18. VIAGRA [Concomitant]
     Active Substance: SILDENAFIL CITRATE
  19. NEXIUM 24HR [Suspect]
     Active Substance: ESOMEPRAZOLE MAGNESIUM
     Indication: GASTROINTESTINAL DISORDER
     Route: 048
     Dates: start: 201106, end: 201406
  20. CARVEDILOL. [Concomitant]
     Active Substance: CARVEDILOL
  21. MELOXICAM. [Concomitant]
     Active Substance: MELOXICAM
  22. ZOLPIDEM [Concomitant]
     Active Substance: ZOLPIDEM\ZOLPIDEM TARTRATE
  23. PRILOSEC [Suspect]
     Active Substance: OMEPRAZOLE MAGNESIUM
     Indication: GASTROINTESTINAL DISORDER
     Route: 048
     Dates: start: 201106, end: 201406
  24. PREVACID [Suspect]
     Active Substance: LANSOPRAZOLE
     Indication: GASTROINTESTINAL DISORDER
     Route: 065
     Dates: start: 201106, end: 201406
  25. ENALAPRIL [Concomitant]
     Active Substance: ENALAPRIL
  26. FUROSEMIDE. [Concomitant]
     Active Substance: FUROSEMIDE
  27. LEVOTHYROXINE. [Concomitant]
     Active Substance: LEVOTHYROXINE
  28. ATORVASTATIN [Concomitant]
     Active Substance: ATORVASTATIN
  29. LOSARTAN. [Concomitant]
     Active Substance: LOSARTAN
  30. PLAVIX [Concomitant]
     Active Substance: CLOPIDOGREL BISULFATE
  31. LOSARTAN. [Concomitant]
     Active Substance: LOSARTAN
  32. PIOGLITAZONE. [Concomitant]
     Active Substance: PIOGLITAZONE
  33. CARVEDILOL. [Concomitant]
     Active Substance: CARVEDILOL
  34. NEXIUM [Suspect]
     Active Substance: ESOMEPRAZOLE MAGNESIUM
     Indication: GASTROINTESTINAL DISORDER
     Route: 048
     Dates: start: 201106, end: 201406
  35. PRILOSEC OTC [Suspect]
     Active Substance: OMEPRAZOLE MAGNESIUM
     Indication: GASTROINTESTINAL DISORDER
     Route: 048
     Dates: start: 201106, end: 201406
  36. GLIPIZIDE. [Concomitant]
     Active Substance: GLIPIZIDE
  37. FERROUS SULFATE. [Concomitant]
     Active Substance: FERROUS SULFATE

REACTIONS (4)
  - End stage renal disease [Unknown]
  - Chronic kidney disease [Unknown]
  - Renal injury [Unknown]
  - Acute kidney injury [Unknown]
